FAERS Safety Report 6423781-4 (Version None)
Quarter: 2009Q4

REPORT INFORMATION
  Report Type: 
  Country: None (occurrence: None)
  Receive Date: 20091102
  Receipt Date: 20091020
  Transmission Date: 20100525
  Serious: Yes (Death, Other)
  Sender: FDA-Public Use
  Company Number: JP-PFIZER INC-2009259842

PATIENT
  Age: 78 Year

DRUGS (9)
  1. LINEZOLID [Suspect]
     Indication: PNEUMONIA STAPHYLOCOCCAL
     Dosage: 600 MG, 2X/DAY
     Route: 042
     Dates: start: 20070207, end: 20070219
  2. PROPOFOL [Suspect]
     Dosage: UNK
     Route: 042
     Dates: start: 20070206, end: 20070220
  3. ELASPOL [Suspect]
     Dosage: UNK
     Route: 042
     Dates: start: 20070208, end: 20070219
  4. TARGOCID [Concomitant]
     Route: 042
     Dates: start: 20070101, end: 20070101
  5. BISOLVON [Concomitant]
     Dosage: UNK
     Route: 042
     Dates: start: 20070208, end: 20070220
  6. FUTHAN [Concomitant]
     Dosage: UNK
     Route: 042
     Dates: start: 20070210, end: 20070218
  7. ALBUMIN HUMAN [Concomitant]
     Dosage: UNK
     Route: 042
     Dates: start: 20070213, end: 20070215
  8. LASIX [Concomitant]
     Dosage: UNK
     Route: 042
     Dates: start: 20070213, end: 20070215
  9. MEROPEN [Concomitant]
     Indication: PNEUMONIA
     Route: 042
     Dates: end: 20070214

REACTIONS (3)
  - DISSEMINATED INTRAVASCULAR COAGULATION [None]
  - HYPERBILIRUBINAEMIA [None]
  - PLATELET COUNT DECREASED [None]
